FAERS Safety Report 9218799 (Version 7)
Quarter: 2014Q1

REPORT INFORMATION
  Report Type: Report from Study
  Country: CZ (occurrence: CZ)
  Receive Date: 20130409
  Receipt Date: 20140328
  Transmission Date: 20141002
  Serious: Yes (Life-Threatening, Hospitalization)
  Sender: FDA-Public Use
  Company Number: CZ-VERTEX PHARMACEUTICALS INC.-2013-004601

PATIENT
  Age: 51 Year
  Sex: Male
  Weight: 97.8 kg

DRUGS (4)
  1. VX-950 (TELAPREVIR) [Suspect]
     Indication: HEPATITIS C
     Dosage: 750 MG, TID, TABLET
     Route: 048
     Dates: start: 20120606, end: 20120829
  2. RIBAVIRIN [Suspect]
     Indication: HEPATITIS C
     Dosage: 400 MG, TID
     Route: 048
     Dates: start: 20120606, end: 20120829
  3. RIBAVIRIN [Suspect]
     Dosage: 400 MG, BID
     Route: 048
     Dates: start: 20120829, end: 20130102
  4. PEGASYS [Suspect]
     Indication: HEPATITIS C
     Dosage: 180 ?G, QW
     Route: 058
     Dates: start: 20120606, end: 20130102

REACTIONS (3)
  - Haemorrhage intracranial [Recovered/Resolved]
  - Epilepsy [Recovered/Resolved]
  - Hemiparesis [Recovered/Resolved]
